FAERS Safety Report 17566744 (Version 3)
Quarter: 2020Q4

REPORT INFORMATION
  Report Type: Report from Study
  Country: US (occurrence: US)
  Receive Date: 20200320
  Receipt Date: 20201103
  Transmission Date: 20210113
  Serious: Yes (Death, Life-Threatening, Other)
  Sender: FDA-Public Use
  Company Number: NVSC2020US078520

PATIENT
  Age: 15 Year
  Sex: Female

DRUGS (6)
  1. KYMRIAH [Suspect]
     Active Substance: TISAGENLECLEUCEL
     Indication: LYMPHOCYTIC LEUKAEMIA
     Dosage: UNK
     Route: 042
     Dates: start: 20180604
  2. CYCLOPHOSPHAMIDE. [Concomitant]
     Active Substance: CYCLOPHOSPHAMIDE
     Indication: PRODUCT USED FOR UNKNOWN INDICATION
     Dosage: UNK
     Route: 065
  3. CYCLOPHOSPHAMIDE. [Concomitant]
     Active Substance: CYCLOPHOSPHAMIDE
     Dosage: UNK
     Route: 065
  4. FLUDARABINE [Concomitant]
     Active Substance: FLUDARABINE PHOSPHATE
     Indication: PRODUCT USED FOR UNKNOWN INDICATION
     Dosage: UNK
     Route: 065
  5. FLUDARABINE [Concomitant]
     Active Substance: FLUDARABINE PHOSPHATE
     Dosage: UNK
     Route: 065
  6. KYMRIAH [Suspect]
     Active Substance: TISAGENLECLEUCEL
     Dosage: UNK
     Route: 042
     Dates: start: 20190422

REACTIONS (19)
  - Escherichia infection [Unknown]
  - Platelet count decreased [Recovered/Resolved]
  - Renal failure [Unknown]
  - Cytokine release syndrome [Recovered/Resolved]
  - Pulmonary haemorrhage [Unknown]
  - Malignant neoplasm progression [Unknown]
  - Clostridium difficile infection [Unknown]
  - Acute lymphocytic leukaemia recurrent [Unknown]
  - White blood cell count decreased [Unknown]
  - Venoocclusive disease [Fatal]
  - Off label use [Unknown]
  - Lymphocyte count decreased [Unknown]
  - Lymphocytic leukaemia [Unknown]
  - Pyrexia [Recovered/Resolved]
  - Treatment failure [Unknown]
  - Neutrophil count decreased [Recovered/Resolved]
  - Haemoglobin decreased [Unknown]
  - Cytomegalovirus infection [Unknown]
  - Haematocrit decreased [Unknown]
